FAERS Safety Report 4672960-5 (Version None)
Quarter: 2005Q2

REPORT INFORMATION
  Report Type: 
  Country: None (occurrence: None)
  Receive Date: 20050523
  Receipt Date: 20050510
  Transmission Date: 20051028
  Serious: Yes (Hospitalization, Other)
  Sender: FDA-Public Use
  Company Number: 2005073369

PATIENT
  Age: 46 Year
  Sex: Female

DRUGS (14)
  1. BEXTRA [Suspect]
     Indication: PAIN
     Dosage: 10 MG (10 MG, 1 IN 1 D), ORAL
     Route: 048
     Dates: start: 20020101
  2. ALBUTEROL [Concomitant]
  3. ATROVENT [Concomitant]
  4. OXYGEN (OXYGEN) [Concomitant]
  5. ADVAIR (FLUTICASONE PROPIONATE, SALMETEROL XINAFOATE) [Concomitant]
  6. METHADONE HCL [Concomitant]
  7. DURAGESIC (FENTANYL) [Concomitant]
  8. PERCOCET [Concomitant]
  9. VICODIN [Concomitant]
  10. PRILOSEC [Concomitant]
  11. NEXIUM [Concomitant]
  12. MONTELUKAST SODIUM (MONTELUKAST SODIUM) [Concomitant]
  13. THEOPHYLLINE [Concomitant]
  14. FLONASE [Concomitant]

REACTIONS (13)
  - ADVERSE EVENT [None]
  - EYELID DISORDER [None]
  - FUNGAL INFECTION [None]
  - GALLBLADDER DISORDER [None]
  - HIATUS HERNIA [None]
  - MASS [None]
  - NAUSEA [None]
  - POLYPECTOMY [None]
  - RASH ERYTHEMATOUS [None]
  - RASH PRURITIC [None]
  - SKIN EXFOLIATION [None]
  - VOMITING [None]
  - WEIGHT DECREASED [None]
